FAERS Safety Report 24580663 (Version 1)
Quarter: 2024Q4

REPORT INFORMATION
  Report Type: Spontaneous
  Country: US (occurrence: None)
  Receive Date: 20241105
  Receipt Date: 20241105
  Transmission Date: 20250115
  Serious: Yes (Hospitalization)
  Sender: Public
  Company Number: None

PATIENT
  Sex: Male

DRUGS (2)
  1. OPSUMIT [Suspect]
     Active Substance: MACITENTAN
     Indication: Pulmonary arterial hypertension
     Dosage: 10 MG ONCE DAILY PO?
     Route: 048
     Dates: start: 202212
  2. ORENITRAM [Suspect]
     Active Substance: TREPROSTINIL

REACTIONS (1)
  - Pericardial effusion [None]
